FAERS Safety Report 11575556 (Version 1)
Quarter: 2015Q3

REPORT INFORMATION
  Report Type: Spontaneous
  Country: JP (occurrence: JP)
  Receive Date: 20150930
  Receipt Date: 20150930
  Transmission Date: 20151125
  Serious: Yes (Other)
  Sender: FDA-Public Use
  Company Number: JP-009507513-1509JPN015122

PATIENT
  Age: 85 Year
  Sex: Male

DRUGS (3)
  1. HALCION [Suspect]
     Active Substance: TRIAZOLAM
     Dosage: DAILY DOSE: 0.25 MG
     Route: 048
  2. ROZEREM [Suspect]
     Active Substance: RAMELTEON
     Dosage: DAILY DOSE: 8 MG
     Route: 048
  3. REFLEX [Suspect]
     Active Substance: MIRTAZAPINE
     Indication: DEPRESSION
     Dosage: DAILY DOSE: 30 MG
     Route: 048

REACTIONS (1)
  - Hypoglycaemia [Unknown]
